FAERS Safety Report 15853696 (Version 1)
Quarter: 2019Q1

REPORT INFORMATION
  Report Type: Spontaneous
  Country: US (occurrence: US)
  Receive Date: 20190121
  Receipt Date: 20190121
  Transmission Date: 20190417
  Serious: Yes (Disabling)
  Sender: FDA-Public Use
  Company Number: None

PATIENT
  Age: 63 Year
  Sex: Male
  Weight: 99 kg

DRUGS (9)
  1. HYDROCHLOROTHIAZIDE. [Concomitant]
     Active Substance: HYDROCHLOROTHIAZIDE
  2. METFORMIN [Concomitant]
     Active Substance: METFORMIN HYDROCHLORIDE
  3. FLUTICASONE PROPIONATS [Concomitant]
  4. CETRIZINE [Concomitant]
     Active Substance: CETIRIZINE HYDROCHLORIDE
  5. LEVOTHYRIXINE [Concomitant]
  6. LOSARTAN POTASSIUM. [Concomitant]
     Active Substance: LOSARTAN POTASSIUM
  7. MULTIVITAMIN [Concomitant]
     Active Substance: VITAMINS
  8. ATORVASTATIN [Concomitant]
     Active Substance: ATORVASTATIN
  9. LOSARTAN POTASSIUM. [Suspect]
     Active Substance: LOSARTAN POTASSIUM
     Indication: HYPERTENSION
     Dosage: ?          QUANTITY:1 TABLET(S);?
     Route: 048
     Dates: start: 20181225, end: 20190119

REACTIONS (6)
  - Migraine [None]
  - Recalled product administered [None]
  - Product impurity [None]
  - Headache [None]
  - Vision blurred [None]
  - Product quality issue [None]

NARRATIVE: CASE EVENT DATE: 20190109
